FAERS Safety Report 16093000 (Version 1)
Quarter: 2019Q1

REPORT INFORMATION
  Report Type: Spontaneous
  Country: FR (occurrence: FR)
  Receive Date: 20190320
  Receipt Date: 20190320
  Transmission Date: 20190418
  Serious: Yes (Hospitalization)
  Sender: FDA-Public Use
  Company Number: FR-ACCORD-113131

PATIENT
  Age: 49 Year
  Sex: Female
  Weight: 60 kg

DRUGS (5)
  1. ZOLPIDEM [Suspect]
     Active Substance: ZOLPIDEM\ZOLPIDEM TARTRATE
     Dosage: EXACT DOSE WHEN UNKNOWN IMV
     Route: 048
     Dates: start: 20181009, end: 20181009
  2. ESCITALOPRAM [Suspect]
     Active Substance: ESCITALOPRAM OXALATE
     Indication: DEPRESSION
     Dosage: EXACT DOSE WHEN UNKNOWN IMV
     Route: 048
     Dates: start: 20181009, end: 20181009
  3. ARIPIPRAZOLE. [Suspect]
     Active Substance: ARIPIPRAZOLE
     Indication: HISTRIONIC PERSONALITY DISORDER
     Dosage: EXACT DOSE WHEN UNKNOWN IMV
     Route: 048
     Dates: start: 20181009, end: 20181009
  4. OLANZAPINE. [Suspect]
     Active Substance: OLANZAPINE
     Dosage: EXACT DOSE WHEN UNKNOWN IMV
     Route: 048
     Dates: start: 20181009, end: 20181009
  5. BROMAZEPAM [Suspect]
     Active Substance: BROMAZEPAM
     Indication: ANXIETY
     Dosage: ESTIMATED DOSE OF 20 CP BROMAZEPAM 6 MG
     Route: 048
     Dates: start: 20181009, end: 20181009

REACTIONS (5)
  - Miosis [Unknown]
  - Hyperthermia [Recovered/Resolved]
  - Intentional overdose [Unknown]
  - Somnolence [Recovered/Resolved]
  - Orthostatic hypotension [Recovered/Resolved]

NARRATIVE: CASE EVENT DATE: 20181009
